FAERS Safety Report 8046133-2 (Version None)
Quarter: 2012Q1

REPORT INFORMATION
  Report Type: 
  Country: None (occurrence: None)
  Receive Date: 20120113
  Receipt Date: 20120109
  Transmission Date: 20120608
  Serious: No
  Sender: FDA-Public Use
  Company Number: US-PFIZER INC-2012007629

PATIENT
  Sex: Female
  Weight: 77 kg

DRUGS (3)
  1. NEURONTIN [Suspect]
     Indication: BACK PAIN
     Dosage: 600 MG, DAILY
     Dates: start: 20100101
  2. NEURONTIN [Suspect]
     Indication: MYALGIA
     Dosage: 600 MG, 3X/DAY
  3. ZOLOFT [Concomitant]
     Indication: DEPRESSION
     Dosage: 100 MG, DAILY

REACTIONS (2)
  - FATIGUE [None]
  - INCORRECT DOSE ADMINISTERED [None]
